FAERS Safety Report 5573342-4 (Version None)
Quarter: 2007Q4

REPORT INFORMATION
  Report Type: 
  Country: None (occurrence: None)
  Receive Date: 20071226
  Receipt Date: 20071220
  Transmission Date: 20080405
  Serious: Yes (Death, Hospitalization)
  Sender: FDA-Public Use
  Company Number: PHBS2007CN21249

PATIENT
  Age: 37 Year
  Sex: Male

DRUGS (1)
  1. SEBIVO [Suspect]
     Indication: HEPATITIS B
     Dosage: 600 MG, QD
     Route: 048
     Dates: start: 20070823

REACTIONS (6)
  - ASCITES [None]
  - DEATH [None]
  - HEPATIC CIRRHOSIS [None]
  - HEPATITIS B [None]
  - JAUNDICE [None]
  - RENAL IMPAIRMENT [None]
